FAERS Safety Report 6519252-7 (Version None)
Quarter: 2009Q4

REPORT INFORMATION
  Report Type: 
  Country: None (occurrence: None)
  Receive Date: 20091228
  Receipt Date: 20091217
  Transmission Date: 20100525
  Serious: Yes (Hospitalization)
  Sender: FDA-Public Use
  Company Number: PHEH2009US18083

PATIENT
  Sex: Female

DRUGS (1)
  1. EXJADE [Suspect]
     Indication: IRON OVERLOAD
     Dosage: 1000 MG, QD
     Route: 048
     Dates: start: 20081008, end: 20091129

REACTIONS (4)
  - BACTERAEMIA [None]
  - BLOOD CREATININE INCREASED [None]
  - PNEUMONIA [None]
  - RENAL FAILURE [None]
